FAERS Safety Report 4308821-0 (Version None)
Quarter: 2004Q1

REPORT INFORMATION
  Report Type: 
  Country: None (occurrence: None)
  Receive Date: 20040227
  Receipt Date: 20040220
  Transmission Date: 20041129
  Serious: Yes (Hospitalization)
  Sender: FDA-Public Use
  Company Number: 001-0981-M0003586

PATIENT
  Age: 68 Year
  Sex: Male
  Weight: 98.4 kg

DRUGS (12)
  1. ATORVASTATIN CALCIUM [Suspect]
     Indication: CORONARY ARTERY DISEASE
     Dosage: 10 MG (DAILY), ORAL
     Route: 048
     Dates: start: 19990504, end: 20000403
  2. GINGKO BILOBA (GINGKO BILOBA) [Concomitant]
  3. ZINC (ZINC) [Concomitant]
  4. ACETYLSALICYLIC ACID SRT [Concomitant]
  5. METFORMIN HCL [Concomitant]
  6. METOPROFOL (METOPROFOL) [Concomitant]
  7. GLIPIZIDE [Concomitant]
  8. DILTIAZEM HYDROCHLORIDE (DILTIAZEM HYDEROCHLORIDE) [Concomitant]
  9. LEVOTHYROXINE SODIUM [Concomitant]
  10. ECONAZOLE NITRATE [Concomitant]
  11. ROSIGLITAZONE MALEATE [Concomitant]
  12. NEOTRACIN (NEOMYCIN SULFATE, POLYMYXIN  B SULFATE, BACITRACIN) [Concomitant]

REACTIONS (7)
  - CHRONIC OBSTRUCTIVE AIRWAYS DISEASE [None]
  - COLONIC POLYP [None]
  - DIVERTICULUM INTESTINAL [None]
  - GASTROINTESTINAL HAEMORRHAGE [None]
  - HAEMOGLOBIN DECREASED [None]
  - RECTAL HAEMORRHAGE [None]
  - THROMBOSIS [None]
